FAERS Safety Report 7956253-6 (Version None)
Quarter: 2011Q4

REPORT INFORMATION
  Report Type: 
  Country: None (occurrence: None)
  Receive Date: 20111205
  Receipt Date: 20111122
  Transmission Date: 20120403
  Serious: Yes (Other)
  Sender: FDA-Public Use
  Company Number: US-RANBAXY-2011US-48504

PATIENT
  Age: 21 Year
  Sex: Female

DRUGS (3)
  1. TOPIRAMATE [Suspect]
     Indication: MIGRAINE
     Dosage: 100 MG, BID
     Route: 065
     Dates: start: 20100501
  2. TOPIRAMATE [Suspect]
     Dosage: 100 MG IN MORNING AND 150 MG IN EVENING
     Route: 065
     Dates: end: 20110201
  3. TOPIRAMATE [Suspect]
     Route: 065
     Dates: start: 20110101, end: 20110201

REACTIONS (1)
  - DISSOCIATIVE DISORDER [None]
